FAERS Safety Report 4579002-0 (Version None)
Quarter: 2005Q1

REPORT INFORMATION
  Report Type: 
  Country: None (occurrence: None)
  Receive Date: 20050211
  Receipt Date: 20041229
  Transmission Date: 20050727
  Serious: Yes (Life-Threatening, Hospitalization, Disabling, Other)
  Sender: FDA-Public Use
  Company Number: US-MERCK-0412USA03257

PATIENT
  Age: 55 Year
  Sex: Female
  Weight: 96 kg

DRUGS (16)
  1. VIOXX [Suspect]
     Indication: OSTEOARTHRITIS
     Route: 048
     Dates: start: 20030101, end: 20040930
  2. VIOXX [Suspect]
     Indication: FIBROMYALGIA
     Route: 048
     Dates: start: 20030101, end: 20040930
  3. METFORMIN HYDROCHLORIDE [Concomitant]
     Indication: WEIGHT
     Route: 065
  4. METFORMIN HYDROCHLORIDE [Concomitant]
     Indication: METABOLIC SYNDROME
     Route: 065
  5. TRAMADOL HYDROCHLORIDE [Concomitant]
     Route: 065
  6. PIROXICAM [Concomitant]
     Route: 065
  7. METOPROLOL SUCCINATE [Concomitant]
     Route: 065
  8. ISOSORBIDE MONONITRATE [Concomitant]
     Route: 065
  9. SERTRALINE HYDROCHLORIDE [Concomitant]
     Route: 065
  10. TRAZODONE HYDROCHLORIDE [Concomitant]
     Route: 065
  11. LISINOPRIL [Concomitant]
     Indication: HYPERTENSION
     Route: 065
  12. ZOCOR [Concomitant]
     Indication: DYSLIPIDAEMIA
     Route: 048
  13. MORPHINE [Concomitant]
     Route: 065
  14. OMEPRAZOLE [Concomitant]
     Route: 065
  15. ATENOLOL [Concomitant]
     Indication: ANGINA PECTORIS
     Route: 048
  16. ASPIRIN [Concomitant]
     Indication: CORONARY ARTERY DISEASE
     Route: 065

REACTIONS (11)
  - ANGINA UNSTABLE [None]
  - BLOOD CHOLESTEROL INCREASED [None]
  - CARDIAC DISORDER [None]
  - CORONARY ARTERY DISEASE [None]
  - CORONARY ARTERY RESTENOSIS [None]
  - CORONARY ARTERY STENOSIS [None]
  - HYPERTENSION [None]
  - MEDICATION ERROR [None]
  - MYOCARDIAL INFARCTION [None]
  - REFUSAL OF TREATMENT BY PATIENT [None]
  - VENTRICULAR HYPOKINESIA [None]
